FAERS Safety Report 5841533-0 (Version None)
Quarter: 2008Q3

REPORT INFORMATION
  Report Type: 
  Country: None (occurrence: None)
  Receive Date: 20080812
  Receipt Date: 20080730
  Transmission Date: 20090109
  Serious: Yes (Death, Hospitalization)
  Sender: FDA-Public Use
  Company Number: US-ROCHE-570113

PATIENT
  Sex: Male
  Weight: 82.1 kg

DRUGS (7)
  1. CAPECITABINE [Suspect]
     Indication: COLORECTAL CANCER
     Dosage: SEVEN DOSE FORM DAILY
     Route: 048
     Dates: start: 20080421, end: 20080507
  2. CAPECITABINE [Suspect]
     Dosage: FOUR DOSE FORM DAILY
     Route: 048
     Dates: start: 20080602, end: 20080709
  3. OXYCONTIN [Concomitant]
  4. LOMOTIL [Concomitant]
  5. IMODIUM [Concomitant]
  6. COMPAZINE [Concomitant]
  7. OXYCODONE HCL [Concomitant]

REACTIONS (3)
  - DEATH [None]
  - DEHYDRATION [None]
  - DIARRHOEA [None]
